FAERS Safety Report 9494443 (Version 2)
Quarter: 2015Q2

REPORT INFORMATION
  Report Type: Spontaneous
  Country: US (occurrence: US)
  Receive Date: 20130903
  Receipt Date: 20150513
  Transmission Date: 20150821
  Serious: Yes (Death)
  Sender: FDA-Public Use
  Company Number: PHHY2013US095307

PATIENT
  Age: 55 Year
  Sex: Female

DRUGS (1)
  1. HYDROXYCHLOROQUINE [Suspect]
     Active Substance: HYDROXYCHLOROQUINE
     Dosage: 400 MG, UNK

REACTIONS (7)
  - Ejection fraction decreased [Fatal]
  - Renal vessel disorder [Fatal]
  - Right ventricular hypertrophy [Fatal]
  - Endocarditis [Fatal]
  - Splenic infarction [Fatal]
  - Dilatation ventricular [Fatal]
  - Cardiomyopathy [Fatal]
